FAERS Safety Report 7413683-9 (Version None)
Quarter: 2011Q2

REPORT INFORMATION
  Report Type: 
  Country: None (occurrence: None)
  Receive Date: 20110413
  Receipt Date: 20110331
  Transmission Date: 20111010
  Serious: Yes (Death, Other)
  Sender: FDA-Public Use
  Company Number: IT-CELGENEUS-083-20785-11040022

PATIENT

DRUGS (13)
  1. VELCADE [Suspect]
     Indication: MULTIPLE MYELOMA
     Route: 051
  2. PEGYLATED LIPOSOMAL DOXORUBICIN [Suspect]
     Indication: MULTIPLE MYELOMA
     Route: 051
  3. ACYCLOVIR [Concomitant]
     Indication: HERPES ZOSTER
     Route: 065
  4. THALIDOMIDE [Suspect]
     Indication: MULTIPLE MYELOMA
     Dosage: 100 MILLIGRAM
     Route: 048
  5. DEXAMETHASONE [Suspect]
     Indication: MULTIPLE MYELOMA
     Route: 048
  6. VALACYCLOVIR [Concomitant]
     Indication: HERPES ZOSTER
     Route: 065
  7. CIPROFLOXACIN [Concomitant]
     Indication: ANTIBIOTIC PROPHYLAXIS
     Dosage: 500 MILLIGRAM
     Route: 065
  8. EPOGEN [Concomitant]
     Route: 065
  9. THALIDOMIDE [Suspect]
     Dosage: 50 MILLIGRAM
     Route: 048
  10. DISPHOSPHONATES [Concomitant]
     Route: 065
  11. ASPIRIN [Concomitant]
     Indication: PROPHYLAXIS
     Route: 065
  12. LOW MOLECULAR WEIGHT HEPARIN [Concomitant]
     Indication: PROPHYLAXIS
     Route: 065
  13. NEUPOGEN [Concomitant]
     Route: 065

REACTIONS (15)
  - PALMAR-PLANTAR ERYTHRODYSAESTHESIA SYNDROME [None]
  - THROMBOCYTOPENIA [None]
  - NEOPLASM [None]
  - INFECTION [None]
  - DEATH [None]
  - GLAUCOMA [None]
  - DEEP VEIN THROMBOSIS [None]
  - GASTROINTESTINAL DISORDER [None]
  - FATIGUE [None]
  - MULTIPLE MYELOMA [None]
  - NEUTROPENIA [None]
  - ANAEMIA [None]
  - MYOCARDIAL INFARCTION [None]
  - NEUROPATHY PERIPHERAL [None]
  - PNEUMONIA [None]
